FAERS Safety Report 9153653 (Version 1)
Quarter: 2013Q1

REPORT INFORMATION
  Report Type: Report from Study
  Country: US (occurrence: US)
  Receive Date: 20130214
  Receipt Date: 20130214
  Transmission Date: 20140127
  Serious: Yes (Life-Threatening, Hospitalization)
  Sender: FDA-Public Use
  Company Number: US-RB-017900-09

PATIENT
  Age: 52 None
  Sex: Male
  Weight: 81 kg

DRUGS (17)
  1. SUBOXONE TABLET [Suspect]
     Indication: DRUG DEPENDENCE
     Route: 060
     Dates: start: 20090629, end: 201207
  2. SUBOXONE TABLET [Suspect]
     Route: 060
     Dates: start: 201209, end: 201209
  3. SUBOXONE TABLET [Suspect]
     Route: 060
     Dates: start: 201209
  4. PERCOCET [Suspect]
     Indication: PAIN
     Dosage: DOSING DETAILS UNKNOWN
     Route: 048
     Dates: start: 201207, end: 201208
  5. ASPIRIN [Concomitant]
     Indication: CARDIAC DISORDER
     Dosage: UNKNOWN DOSING INFORMATION
     Route: 065
  6. ALBUTEROL SULFATE [Concomitant]
     Indication: ASTHMA
     Dosage: UNKNOWN DOSING INFORMATION
     Route: 065
  7. ALPRAZOLAM [Concomitant]
     Indication: ANXIETY
     Dosage: UNKNOWN DOSING INFORMATION
     Route: 065
  8. CRESTOR [Concomitant]
     Indication: BLOOD CHOLESTEROL INCREASED
     Dosage: UNKNOWN DOSING INFORMATION
     Route: 065
  9. TOPROL XL [Concomitant]
     Indication: HYPERTENSION
     Dosage: UNKNOWN DOSING INFORMATION
     Route: 065
  10. POTASSIUM [Concomitant]
     Indication: PRODUCT USED FOR UNKNOWN INDICATION
     Dosage: UNKNOWN  DOSING INFORMATION
     Route: 065
  11. MAXAIR AUTOHALER [Concomitant]
     Indication: ASTHMA
     Dosage: UNKNOWN DOSING INFORMATION
     Route: 065
  12. FORADIL [Concomitant]
     Indication: ASTHMA
     Dosage: UNKNOWN DOSING INFORMATION
     Route: 065
  13. LASIX [Concomitant]
     Indication: FLUID RETENTION
     Dosage: UNKNOWN DOSING INFORMATION
     Route: 065
  14. ZETIA [Concomitant]
     Indication: BLOOD CHOLESTEROL INCREASED
     Dosage: UNKNOWN DOSING INFORMATION
     Route: 065
  15. ZOLOFT [Concomitant]
     Indication: ANXIETY
     Dosage: UNKNOWN DOSING INFORMATION
     Route: 065
  16. NITROGLYCERIN [Concomitant]
     Indication: CHEST PAIN
     Dosage: UNKNOWN DOSING INFORMATION
     Route: 065
  17. PLAVIX [Concomitant]
     Indication: STENT PLACEMENT
     Dosage: UNKNOWN DOSING INFORMATION
     Route: 065

REACTIONS (22)
  - Aneurysm [Recovered/Resolved]
  - Pleural effusion [Recovered/Resolved]
  - Pneumonia [Recovered/Resolved]
  - Myocardial infarction [Recovered/Resolved]
  - Hyperhidrosis [Recovered/Resolved]
  - Headache [Not Recovered/Not Resolved]
  - Chills [Recovered/Resolved]
  - Fatigue [Not Recovered/Not Resolved]
  - Sluggishness [Not Recovered/Not Resolved]
  - Back pain [Not Recovered/Not Resolved]
  - Pain [Not Recovered/Not Resolved]
  - Gait disturbance [Not Recovered/Not Resolved]
  - Eye burns [Recovered/Resolved]
  - Arthritis [Not Recovered/Not Resolved]
  - Agitation [Recovered/Resolved]
  - Stress [Recovered/Resolved]
  - Drug withdrawal syndrome [Recovered/Resolved]
  - Wrong technique in drug usage process [Not Recovered/Not Resolved]
  - Myalgia [Not Recovered/Not Resolved]
  - Muscle spasms [Not Recovered/Not Resolved]
  - Underdose [Not Recovered/Not Resolved]
  - Constipation [Not Recovered/Not Resolved]
